FAERS Safety Report 14836714 (Version 3)
Quarter: 2020Q1

REPORT INFORMATION
  Report Type: Report from Study
  Country: DE (occurrence: DE)
  Receive Date: 20180502
  Receipt Date: 20200304
  Transmission Date: 20200409
  Serious: Yes (Hospitalization, Other)
  Sender: FDA-Public Use
  Company Number: PHHY2018DE074211

PATIENT
  Age: 3 Year
  Sex: Female
  Weight: 11.2 kg

DRUGS (1)
  1. SOMATROPIN. [Suspect]
     Active Substance: SOMATROPIN
     Indication: PRADER-WILLI SYNDROME
     Dosage: 0.4 MG, QD (5 MG/ 1.5 ML) (SOLUTION FOR INJECTION)
     Route: 058
     Dates: start: 20090608

REACTIONS (1)
  - Adenoidal hypertrophy [Recovered/Resolved]

NARRATIVE: CASE EVENT DATE: 201110
